FAERS Safety Report 10064824 (Version 4)
Quarter: 2014Q4

REPORT INFORMATION
  Report Type: Spontaneous
  Country: US (occurrence: None)
  Receive Date: 20140404
  Receipt Date: 20141229
  Transmission Date: 20150528
  Serious: Yes (Other)
  Sender: FDA-Public Use
  Company Number: 2014-US-003873

PATIENT
  Age: 64 Year
  Sex: Female

DRUGS (9)
  1. CLONIDINE (CLONIDINE HYDROCHLORIDE) [Concomitant]
  2. XYREM [Suspect]
     Active Substance: SODIUM OXYBATE
     Indication: SLEEP DISORDER
     Route: 048
     Dates: start: 200408, end: 2004
  3. CYTOMEL (LIOTHYRONINE SODIUM) [Concomitant]
  4. VIVELLE-DOT (ESTRADIOL) [Concomitant]
  5. PRINIVIL (LISINOPRIL DIHYDRATE) [Concomitant]
  6. ALPRAZOLAM (ALPRAZOLAM) [Concomitant]
     Active Substance: ALPRAZOLAM
  7. HYDRALAZINE (HYDRALAZINE HYDROCHLORIDE) [Concomitant]
  8. ZOLPIDEM [Concomitant]
     Active Substance: ZOLPIDEM\ZOLPIDEM TARTRATE
  9. FUROSEMIDE (FUROSEMIDE) [Concomitant]
     Active Substance: FUROSEMIDE

REACTIONS (4)
  - Off label use [None]
  - Clavicle fracture [None]
  - Spinal fracture [None]
  - Fall [None]

NARRATIVE: CASE EVENT DATE: 20140324
